FAERS Safety Report 6162568-7 (Version None)
Quarter: 2009Q2

REPORT INFORMATION
  Report Type: 
  Country: None (occurrence: None)
  Receive Date: 20090421
  Receipt Date: 20090413
  Transmission Date: 20091009
  Serious: Yes (Life-Threatening, Hospitalization)
  Sender: FDA-Public Use
  Company Number: GB-ABBOTT-09P-167-0567986-00

PATIENT
  Age: 34 Year
  Sex: Male

DRUGS (4)
  1. ADALIMUMAB [Suspect]
     Indication: PSORIATIC ARTHROPATHY
  2. ADALIMUMAB [Suspect]
     Dosage: NOT REPORTED
  3. CYCLOSPORINE [Concomitant]
     Indication: PSORIATIC ARTHROPATHY
  4. PREDNISOLONE [Concomitant]
     Indication: PSORIATIC ARTHROPATHY

REACTIONS (1)
  - NECROTISING FASCIITIS [None]
